FAERS Safety Report 5574144-5 (Version None)
Quarter: 2007Q4

REPORT INFORMATION
  Report Type: 
  Country: None (occurrence: None)
  Receive Date: 20071221
  Receipt Date: 20071207
  Transmission Date: 20080405
  Serious: Yes (Hospitalization)
  Sender: FDA-Public Use
  Company Number: MESA-2007-040

PATIENT
  Age: 14 Year
  Sex: Male
  Weight: 42 kg

DRUGS (5)
  1. CANASA [Suspect]
     Indication: CROHN'S DISEASE
     Dosage: 1000 MG HS
     Dates: start: 20071024
  2. PENTASA [Suspect]
     Indication: CROHN'S DISEASE
     Dosage: 2000 MG, BID, PO
     Route: 048
     Dates: start: 20071004, end: 20071021
  3. ASACOL [Suspect]
     Indication: CROHN'S DISEASE
     Dosage: 1200 MG  TID PO
     Route: 048
     Dates: start: 20071026, end: 20071122
  4. LIALDA [Suspect]
     Indication: CROHN'S DISEASE
     Dosage: 3.6 MG QD PO
     Route: 048
     Dates: start: 20070701, end: 20070701
  5. LIALDA [Suspect]
     Indication: CROHN'S DISEASE
     Dosage: 3.6 MG QD PO
     Route: 048
     Dates: start: 20071122, end: 20071126

REACTIONS (10)
  - CROHN'S DISEASE [None]
  - DEHYDRATION [None]
  - DYSPHAGIA [None]
  - EYE PAIN [None]
  - HAEMOGLOBIN DECREASED [None]
  - MEDICATION RESIDUE [None]
  - ORAL INTAKE REDUCED [None]
  - PHARYNGOLARYNGEAL PAIN [None]
  - PLEURAL EFFUSION [None]
  - WEIGHT DECREASED [None]
